FAERS Safety Report 4766873-8 (Version None)
Quarter: 2005Q3

REPORT INFORMATION
  Report Type: 
  Country: None (occurrence: None)
  Receive Date: 20050909
  Receipt Date: 20050422
  Transmission Date: 20060218
  Serious: Yes (Other)
  Sender: FDA-Public Use
  Company Number: 2005062463

PATIENT
  Age: 46 Year
  Sex: Female

DRUGS (1)
  1. BEXTRA [Suspect]
     Indication: INTERVERTEBRAL DISC PROTRUSION
     Dosage: 20 MG (20 MG, 1 IN 1 D), ORAL
     Route: 048
     Dates: start: 20050301, end: 20050301

REACTIONS (3)
  - ARRHYTHMIA [None]
  - HYPERTENSION [None]
  - MONOPLEGIA [None]
